FAERS Safety Report 8089549-0 (Version None)
Quarter: 2012Q1

REPORT INFORMATION
  Report Type: 
  Country: None (occurrence: None)
  Receive Date: 20120128
  Receipt Date: 20110616
  Transmission Date: 20120608
  Serious: No
  Sender: FDA-Public Use
  Company Number: US-ABBOTT-11P-163-0733177-00

PATIENT
  Age: 41 Year
  Sex: Female

DRUGS (5)
  1. HUMIRA [Suspect]
     Dates: start: 20110616
  2. METHOTREXATE [Concomitant]
     Indication: PRODUCT USED FOR UNKNOWN INDICATION
     Route: 048
  3. IBUPROFEN [Concomitant]
     Indication: PAIN
     Route: 048
  4. VICODIN [Concomitant]
     Indication: PAIN
     Route: 048
  5. HUMIRA [Suspect]
     Indication: RHEUMATOID ARTHRITIS
     Dates: start: 20110505, end: 20110615

REACTIONS (4)
  - RHEUMATOID ARTHRITIS [None]
  - ACTIVITIES OF DAILY LIVING IMPAIRED [None]
  - FEELING OF DESPAIR [None]
  - DEPRESSED MOOD [None]
